FAERS Safety Report 21720762 (Version 1)
Quarter: 2022Q4

REPORT INFORMATION
  Report Type: Spontaneous
  Country: US (occurrence: None)
  Receive Date: 20221212
  Receipt Date: 20221212
  Transmission Date: 20230112
  Serious: Yes (Hospitalization)
  Sender: FDA-Public Use
  Company Number: None

PATIENT
  Sex: Female

DRUGS (1)
  1. DOFETILIDE [Suspect]
     Active Substance: DOFETILIDE
     Indication: Arrhythmia
     Dosage: 500MCG TWO TIMES A DAY ORAL;?
     Route: 048
     Dates: start: 20221017

REACTIONS (2)
  - Haematological infection [None]
  - Streptococcal infection [None]
